FAERS Safety Report 9471038 (Version 3)
Quarter: 2013Q3

REPORT INFORMATION
  Report Type: Spontaneous
  Country: TW (occurrence: TW)
  Receive Date: 20130822
  Receipt Date: 20130913
  Transmission Date: 20140515
  Serious: Yes (Hospitalization)
  Sender: FDA-Public Use
  Company Number: TW-ABBOTT-13P-153-1116457-00

PATIENT
  Age: 49 Year
  Sex: Male
  Weight: 51 kg

DRUGS (2)
  1. HUMIRA [Suspect]
     Indication: CROHN^S DISEASE
     Route: 058
     Dates: start: 20120213
  2. HUMIRA [Suspect]
     Dates: start: 20130805

REACTIONS (2)
  - Pain [Not Recovered/Not Resolved]
  - Abdominal pain [Recovered/Resolved]
